FAERS Safety Report 6013570-7 (Version None)
Quarter: 2008Q4

REPORT INFORMATION
  Report Type: 
  Country: None (occurrence: None)
  Receive Date: 20081219
  Receipt Date: 20081209
  Transmission Date: 20090506
  Serious: Yes (Disabling)
  Sender: FDA-Public Use
  Company Number: PHHY2008AT31156

PATIENT
  Age: 71 Year
  Sex: Male
  Weight: 71 kg

DRUGS (1)
  1. LESCOL [Suspect]
     Indication: HYPERCHOLESTEROLAEMIA
     Dosage: 40 MG
     Dates: start: 20020101, end: 20080301

REACTIONS (5)
  - BLOOD CREATINE PHOSPHOKINASE INCREASED [None]
  - MUSCLE ATROPHY [None]
  - RHABDOMYOLYSIS [None]
  - TENDON INJURY [None]
  - WEIGHT DECREASED [None]
